FAERS Safety Report 13373787 (Version 1)
Quarter: 2017Q1

REPORT INFORMATION
  Report Type: Spontaneous
  Country: US (occurrence: US)
  Receive Date: 20170325
  Receipt Date: 20170325
  Transmission Date: 20170429
  Serious: No
  Sender: FDA-Public Use
  Company Number: US-AMGEN-USASP2017043025

PATIENT
  Age: 12 Year
  Sex: Male
  Weight: 31.75 kg

DRUGS (1)
  1. ENBREL [Suspect]
     Active Substance: ETANERCEPT
     Indication: PSORIASIS
     Dosage: 30 MG, QWK
     Route: 065
     Dates: start: 201605

REACTIONS (2)
  - Drug dispensing error [Unknown]
  - Weight increased [Unknown]

NARRATIVE: CASE EVENT DATE: 201605
